FAERS Safety Report 8131303-5 (Version None)
Quarter: 2012Q1

REPORT INFORMATION
  Report Type: 
  Country: None (occurrence: None)
  Receive Date: 20120210
  Receipt Date: 20120210
  Transmission Date: 20120608
  Serious: Yes (Other)
  Sender: FDA-Public Use
  Company Number: None

PATIENT
  Age: 64 Year
  Sex: Male
  Weight: 92.9 kg

DRUGS (1)
  1. BOCEPREVIR [Suspect]
     Indication: HEPATITIS C
     Dosage: 800 MG TID PO
     Route: 048
     Dates: start: 20111110

REACTIONS (7)
  - BLOOD CREATININE INCREASED [None]
  - HAEMORRHOIDS [None]
  - DRY SKIN [None]
  - BLOOD UREA INCREASED [None]
  - PRURITUS [None]
  - FATIGUE [None]
  - URTICARIA [None]
